FAERS Safety Report 6857362-5 (Version None)
Quarter: 2010Q3

REPORT INFORMATION
  Report Type: 
  Country: None (occurrence: None)
  Receive Date: 20100719
  Receipt Date: 20100618
  Transmission Date: 20110219
  Serious: Yes (Other)
  Sender: FDA-Public Use
  Company Number: CZ-PFIZER INC-2010068360

PATIENT
  Age: 16 Year
  Sex: Female

DRUGS (9)
  1. ZOMACTON [Suspect]
     Dosage: 0.6 IU, UNK
  2. ESTROFEM [Suspect]
  3. UTROGESTAN [Suspect]
  4. MINIRIN ^AVENTIS PHARMA^ [Suspect]
  5. HIDROCORTIZON [Concomitant]
     Dosage: UNK
  6. LEVOTHYROXINE SODIUM [Concomitant]
  7. ETHINYLESTRADIOL [Concomitant]
  8. OXAZEPAM [Concomitant]
  9. AMITRIPTYLINE [Concomitant]

REACTIONS (5)
  - ANXIETY [None]
  - BLOOD SODIUM ABNORMAL [None]
  - DEPRESSION [None]
  - OBSESSIVE-COMPULSIVE DISORDER [None]
  - WEIGHT INCREASED [None]
